FAERS Safety Report 19432845 (Version 1)
Quarter: 2021Q2

REPORT INFORMATION
  Report Type: Spontaneous
  Country: US (occurrence: US)
  Receive Date: 20210617
  Receipt Date: 20210617
  Transmission Date: 20210717
  Serious: No
  Sender: FDA-Public Use
  Company Number: None

PATIENT

DRUGS (1)
  1. VENETOCLAX. [Suspect]
     Active Substance: VENETOCLAX

REACTIONS (4)
  - Adverse drug reaction [None]
  - Visual impairment [None]
  - Macular degeneration [None]
  - Cataract operation [None]
